FAERS Safety Report 6054453-6 (Version None)
Quarter: 2009Q1

REPORT INFORMATION
  Report Type: 
  Country: None (occurrence: None)
  Receive Date: 20090127
  Receipt Date: 20090123
  Transmission Date: 20090719
  Serious: No
  Sender: FDA-Public Use
  Company Number: US-B.I. PHARMACEUTICALS,INC./RIDGEFIELD-2009-BP-00435BP

PATIENT
  Sex: Male

DRUGS (7)
  1. FLOMAX [Suspect]
     Indication: BENIGN PROSTATIC HYPERPLASIA
     Dosage: .4MG
     Route: 048
     Dates: end: 20080501
  2. FLOMAX [Suspect]
     Indication: POLLAKIURIA
  3. FLOMAX [Suspect]
     Indication: MICTURITION URGENCY
  4. FLOMAX [Suspect]
     Indication: PROSTATOMEGALY
  5. PROSCAR [Concomitant]
  6. HYTRIN [Concomitant]
  7. CARDURA [Concomitant]

REACTIONS (4)
  - HYPOTENSION [None]
  - MUSCLE SPASMS [None]
  - PAINFUL ERECTION [None]
  - PRIAPISM [None]
